FAERS Safety Report 15833112 (Version 2)
Quarter: 2019Q1

REPORT INFORMATION
  Report Type: Report from Study
  Country: JP (occurrence: JP)
  Receive Date: 20190116
  Receipt Date: 20190118
  Transmission Date: 20190417
  Serious: Yes (Hospitalization, Other)
  Sender: FDA-Public Use
  Company Number: JP-GLAXOSMITHKLINE-JP2018225025

PATIENT
  Age: 9 Decade
  Sex: Female

DRUGS (27)
  1. MEPOLIZUMAB [Suspect]
     Active Substance: MEPOLIZUMAB
     Dosage: 100 MG, QD
     Route: 058
     Dates: start: 20180625, end: 20180625
  2. KIPRES [Concomitant]
     Active Substance: MONTELUKAST SODIUM
     Indication: ASTHMA
     Dosage: UNK
  3. ALVESCO [Concomitant]
     Active Substance: CICLESONIDE
     Indication: ASTHMA
     Dosage: UNK
  4. CARBOCISTEINE [Concomitant]
     Active Substance: CARBOCYSTEINE
     Dosage: UNK
  5. AMLODIPINE BESILATE [Concomitant]
     Active Substance: AMLODIPINE BESYLATE
     Dosage: UNK
  6. MEPOLIZUMAB [Suspect]
     Active Substance: MEPOLIZUMAB
     Dosage: 100 MG, QD
     Route: 058
     Dates: start: 20180423, end: 20180423
  7. XYZAL [Concomitant]
     Active Substance: LEVOCETIRIZINE DIHYDROCHLORIDE
     Dosage: UNK
  8. SPIRONOLACTONE. [Concomitant]
     Active Substance: SPIRONOLACTONE
     Dosage: UNK
  9. ALVESCO [Concomitant]
     Active Substance: CICLESONIDE
     Dosage: 200 ?G, 1D
  10. LANSOPRAZOLE. [Concomitant]
     Active Substance: LANSOPRAZOLE
     Dosage: UNK
  11. FLUTIFORM AEROSOL [Concomitant]
     Indication: ASTHMA
     Dosage: 500 ?G, 1D
  12. MEPOLIZUMAB [Suspect]
     Active Substance: MEPOLIZUMAB
     Dosage: 100 MG, QD
     Route: 058
     Dates: start: 20180827, end: 20180827
  13. SPIRIVA RESPIMAT [Concomitant]
     Active Substance: TIOTROPIUM BROMIDE
     Indication: ASTHMA
     Dosage: UNK
  14. ERYTHROCIN [Concomitant]
     Active Substance: ERYTHROMYCIN LACTOBIONATE
     Dosage: UNK
  15. VASOLAN [Concomitant]
     Active Substance: VERAPAMIL HYDROCHLORIDE
     Dosage: UNK
  16. MEPOLIZUMAB [Suspect]
     Active Substance: MEPOLIZUMAB
     Dosage: 100 MG, QD
     Route: 058
     Dates: start: 20180123, end: 20180123
  17. MEPOLIZUMAB [Suspect]
     Active Substance: MEPOLIZUMAB
     Dosage: 100 MG, QD
     Route: 058
     Dates: start: 20180320, end: 20180320
  18. MEPOLIZUMAB [Suspect]
     Active Substance: MEPOLIZUMAB
     Dosage: 100 MG, QD
     Route: 058
     Dates: start: 20180521, end: 20180521
  19. MEPOLIZUMAB [Suspect]
     Active Substance: MEPOLIZUMAB
     Dosage: 100 MG, QD
     Route: 058
     Dates: start: 20180928, end: 20180928
  20. MAGMITT [Concomitant]
     Active Substance: MAGNESIUM OXIDE
     Dosage: UNK
  21. FUROSEMIDE. [Concomitant]
     Active Substance: FUROSEMIDE
     Dosage: UNK
  22. PRAVASTATIN SODIUM. [Concomitant]
     Active Substance: PRAVASTATIN SODIUM
     Dosage: UNK
  23. MEPOLIZUMAB [Suspect]
     Active Substance: MEPOLIZUMAB
     Indication: ASTHMA
     Dosage: 100 MG, QD
     Route: 058
     Dates: start: 20171221, end: 20171221
  24. MEPOLIZUMAB [Suspect]
     Active Substance: MEPOLIZUMAB
     Dosage: 100 MG, QD
     Route: 058
     Dates: start: 20180220, end: 20180220
  25. MEPOLIZUMAB [Suspect]
     Active Substance: MEPOLIZUMAB
     Dosage: 100 MG, QD
     Route: 058
     Dates: start: 20180730, end: 20180730
  26. PLAVIX [Concomitant]
     Active Substance: CLOPIDOGREL BISULFATE
     Dosage: UNK
  27. HEPARINOID [Concomitant]
     Active Substance: CHONDROITIN SULFATE (BOVINE)
     Dosage: UNK

REACTIONS (2)
  - Pneumonia [Recovered/Resolved]
  - Organising pneumonia [Recovering/Resolving]

NARRATIVE: CASE EVENT DATE: 20180911
